FAERS Safety Report 9134733 (Version 1)
Quarter: 2013Q1

REPORT INFORMATION
  Report Type: Spontaneous
  Country: US (occurrence: None)
  Receive Date: 20130205
  Receipt Date: 20130205
  Transmission Date: 20140127
  Serious: Yes (Other)
  Sender: FDA-Public Use
  Company Number: USA/USA/13/0027745

PATIENT
  Age: 34 Year
  Sex: Female

DRUGS (10)
  1. CITALOPRAM [Suspect]
     Indication: ANXIETY
     Dosage: 1 DOSE PER DAY.
     Route: 048
  2. IBUPROFEN (IBUPROFEN) [Suspect]
     Indication: FRACTURE PAIN
  3. NAPROXEN (NAPROXEN) [Suspect]
     Indication: PRODUCT USED FOR UNKNOWN INDICATION
  4. OXAPROZIN [Suspect]
     Indication: BURSITIS
  5. LORAZEPAM (LORAZEPAM) [Suspect]
     Indication: PRODUCT USED FOR UNKNOWN INDICATION
  6. HYDROXYZINE PAMOATE [Suspect]
     Indication: PRODUCT USED FOR UNKNOWN INDICATION
  7. ALBUTEROL (SALBUTAMOL) [Suspect]
     Indication: COUGH
     Dosage: TWO PUFFS EVERY 4-6 HOURS AS NEEDED.
  8. ALBUTEROL (SALBUTAMOL) [Suspect]
     Indication: WHEEZING
     Dosage: TWO PUFFS EVERY 4-6 HOURS AS NEEDED.
  9. ESTRADIOL (ESTRADIOL) (GEL) [Suspect]
     Indication: PRODUCT USED FOR UNKNOWN INDICATION
     Dosage: 1 DOSE PER DAY.
  10. METHOCARBAMOL [Suspect]
     Indication: PRODUCT USED FOR UNKNOWN INDICATION

REACTIONS (5)
  - Drug interaction [None]
  - Increased tendency to bruise [None]
  - Ecchymosis [None]
  - Excoriation [None]
  - Impaired healing [None]
